FAERS Safety Report 7608153-9 (Version None)
Quarter: 2011Q3

REPORT INFORMATION
  Report Type: 
  Country: None (occurrence: None)
  Receive Date: 20110714
  Receipt Date: 20110708
  Transmission Date: 20111222
  Serious: Yes (Other)
  Sender: FDA-Public Use
  Company Number: GB-SP-2011-04106

PATIENT
  Sex: Male

DRUGS (11)
  1. METFORMIN HCL [Concomitant]
     Route: 048
  2. ISOSORBIDE DINITRATE [Concomitant]
     Route: 048
  3. GLIPIZIDE [Concomitant]
     Route: 048
  4. OMEPRAZOLE [Concomitant]
  5. ATROVENT [Concomitant]
  6. IMMUCYST [Suspect]
     Indication: PRODUCT USED FOR UNKNOWN INDICATION
     Route: 065
     Dates: start: 20110627, end: 20110627
  7. SEREVENT [Concomitant]
  8. ASPIRIN [Concomitant]
     Route: 048
  9. ROSUVASTATIN [Concomitant]
     Route: 048
  10. CLENIL [Concomitant]
  11. LISINOPRIL [Concomitant]
     Route: 048

REACTIONS (3)
  - ANAPHYLACTIC REACTION [None]
  - RASH GENERALISED [None]
  - URTICARIA [None]
